FAERS Safety Report 11306502 (Version 1)
Quarter: 2015Q3

REPORT INFORMATION
  Report Type: Spontaneous
  Country: CA (occurrence: CA)
  Receive Date: 20150723
  Receipt Date: 20150723
  Transmission Date: 20151125
  Serious: Yes (Hospitalization)
  Sender: FDA-Public Use
  Company Number: CA-009507513-1507CAN006129

PATIENT
  Age: 89 Year
  Sex: Female

DRUGS (1)
  1. FOSAMAX [Suspect]
     Active Substance: ALENDRONATE SODIUM
     Dosage: 70 MG, ONCE A DAY FOR 1 WEEK
     Route: 048

REACTIONS (2)
  - Overdose [Unknown]
  - Adverse event [Unknown]
